FAERS Safety Report 5110101-0 (Version None)
Quarter: 2006Q3

REPORT INFORMATION
  Report Type: 
  Country: None (occurrence: None)
  Receive Date: 20060731
  Receipt Date: 20060627
  Transmission Date: 20061208
  Serious: No
  Sender: FDA-Public Use
  Company Number: 2006PV016556

PATIENT
  Age: 66 Year
  Sex: Female
  Weight: 83.9154 kg

DRUGS (17)
  1. BYETTA [Suspect]
     Indication: WEIGHT CONTROL
     Dosage: 5 MCG;BID;SC
     Route: 058
     Dates: start: 20060625
  2. CYMBALTA [Concomitant]
  3. LYRICA [Concomitant]
  4. ULTRAM [Concomitant]
  5. NEURONTIN [Concomitant]
  6. LEVOXIN [Concomitant]
  7. AMBIEN [Concomitant]
  8. CLONIDINE [Concomitant]
  9. OMEPRAZOLE [Concomitant]
  10. MAXZIDE [Concomitant]
  11. BENICAR [Concomitant]
  12. VYTORIN [Concomitant]
  13. ECOTRIN [Concomitant]
  14. MIRALAX [Concomitant]
  15. EVISTA [Concomitant]
  16. CALTRATE [Concomitant]
  17. LEXAPRO [Concomitant]

REACTIONS (3)
  - CHEST PAIN [None]
  - FLATULENCE [None]
  - PALPITATIONS [None]
